FAERS Safety Report 5051094-4 (Version None)
Quarter: 2006Q2

REPORT INFORMATION
  Report Type: 
  Country: None (occurrence: None)
  Receive Date: 20060614
  Receipt Date: 20060425
  Transmission Date: 20061013
  Serious: Yes (Other)
  Sender: FDA-Public Use
  Company Number: 445923

PATIENT
  Age: 66 Year
  Sex: Male

DRUGS (7)
  1. BONIVA [Suspect]
     Indication: OSTEOPOROSIS
     Dosage: 1 PER MONTH ORAL
     Route: 048
     Dates: start: 20050915
  2. AZMACORT [Concomitant]
  3. ALBUTEROL [Concomitant]
  4. SALINE (SODIUM CHLORIDE) [Concomitant]
  5. ASTELIN [Concomitant]
  6. VITAMINS NOS (MULTIVITAMIN NOS) [Concomitant]
  7. NAPROXEN SODIUM [Concomitant]

REACTIONS (3)
  - EPISTAXIS [None]
  - INFECTION [None]
  - NASAL CONGESTION [None]
